FAERS Safety Report 21368570 (Version 1)
Quarter: 2022Q3

REPORT INFORMATION
  Report Type: Spontaneous
  Country: US (occurrence: US)
  Receive Date: 20220923
  Receipt Date: 20220923
  Transmission Date: 20221026
  Serious: No
  Sender: FDA-Public Use
  Company Number: US-SA-SAC20220919001347

PATIENT
  Sex: Female

DRUGS (4)
  1. DUPIXENT [Suspect]
     Active Substance: DUPILUMAB
     Indication: Dermatitis atopic
     Dosage: 300 MG, QOW
     Route: 058
     Dates: start: 20220506, end: 2022
  2. EUCRISA [Concomitant]
     Active Substance: CRISABOROLE
  3. MOMETASONE [Concomitant]
     Active Substance: MOMETASONE
  4. PIMECROLIMUS [Concomitant]
     Active Substance: PIMECROLIMUS

REACTIONS (1)
  - Dyspnoea [Not Recovered/Not Resolved]

NARRATIVE: CASE EVENT DATE: 20220501
